FAERS Safety Report 9644192 (Version 3)
Quarter: 2014Q1

REPORT INFORMATION
  Report Type: Spontaneous
  Country: US (occurrence: US)
  Receive Date: 20131024
  Receipt Date: 20140108
  Transmission Date: 20141002
  Serious: Yes (Other)
  Sender: FDA-Public Use
  Company Number: US-RB-059826-13

PATIENT
  Age: 0 None
  Sex: Female

DRUGS (10)
  1. BUPRENORPHINE [Suspect]
     Indication: DRUG DEPENDENCE
     Route: 064
     Dates: start: 2013, end: 20131011
  2. ALBUTEROL [Suspect]
     Indication: WHEEZING
     Dosage: DOSING DETAILS UNKNOWN
     Route: 064
     Dates: start: 2013, end: 20131011
  3. CLONAZEPAM [Suspect]
     Indication: ANXIETY
     Route: 064
     Dates: start: 2013, end: 20131011
  4. GABAPENTIN [Suspect]
     Indication: BACK PAIN
     Dosage: DOSAGE OF 300 MG REPORTED
     Route: 064
     Dates: start: 2013, end: 20131011
  5. HCTZ [Suspect]
     Indication: OEDEMA
     Route: 064
     Dates: start: 2013, end: 20131011
  6. OMEPRAZOLE [Suspect]
     Indication: GASTROOESOPHAGEAL REFLUX DISEASE
     Route: 064
     Dates: start: 2013, end: 20131011
  7. PRENATAL VITAMINS [Suspect]
     Indication: PRODUCT USED FOR UNKNOWN INDICATION
     Dosage: DOSING DETAILS UNKNOWN
     Route: 064
     Dates: start: 2013, end: 20131011
  8. GENERIC BUPRENORPHINE [Suspect]
     Indication: PRODUCT USED FOR UNKNOWN INDICATION
     Dosage: DOSING DETAILS UNKNOWN
     Route: 063
     Dates: start: 20131011
  9. NICOTINE [Concomitant]
     Dosage: 20 CIGARETTES DAILY
     Route: 064
     Dates: start: 201301, end: 20131011
  10. NICOTINE [Concomitant]
     Indication: PRODUCT USED FOR UNKNOWN INDICATION
     Dosage: 20 CIGARETTES DAILY
     Route: 063
     Dates: start: 20131011

REACTIONS (3)
  - Foetal exposure during pregnancy [Recovered/Resolved]
  - Low birth weight baby [Recovered/Resolved]
  - Exposure during breast feeding [Not Recovered/Not Resolved]
